FAERS Safety Report 7007268-6 (Version None)
Quarter: 2010Q3

REPORT INFORMATION
  Report Type: 
  Country: None (occurrence: None)
  Receive Date: 20100922
  Receipt Date: 20100909
  Transmission Date: 20110219
  Serious: Yes (Other)
  Sender: FDA-Public Use
  Company Number: PHHY2010CA59778

PATIENT
  Sex: Female

DRUGS (5)
  1. ACLASTA [Suspect]
     Indication: OSTEOPOROSIS
     Dosage: 5 MG
     Route: 042
     Dates: start: 20090909
  2. CALCIUM [Concomitant]
  3. VITAMIN D [Concomitant]
  4. RANITIDINE [Concomitant]
  5. VITALUX [Concomitant]

REACTIONS (5)
  - DEVICE DIFFICULT TO USE [None]
  - FATIGUE [None]
  - JAW DISORDER [None]
  - RETINAL DEGENERATION [None]
  - VISUAL ACUITY REDUCED [None]
